FAERS Safety Report 10619041 (Version 2)
Quarter: 2015Q1

REPORT INFORMATION
  Report Type: Spontaneous
  Country: US (occurrence: US)
  Receive Date: 20141202
  Receipt Date: 20150213
  Transmission Date: 20150720
  Serious: Yes (Hospitalization)
  Sender: FDA-Public Use
  Company Number: US-OTSUKA-US-2014-14201

PATIENT

DRUGS (1)
  1. ABILIFY MAINTENA [Suspect]
     Active Substance: ARIPIPRAZOLE
     Indication: SCHIZOPHRENIA
     Dosage: 400 MG MILLIGRAM(S), QM
     Route: 030
     Dates: start: 201407

REACTIONS (4)
  - Depression [Recovered/Resolved]
  - Inappropriate schedule of drug administration [Unknown]
  - Paranoia [Recovered/Resolved]
  - Suicidal ideation [Recovered/Resolved]

NARRATIVE: CASE EVENT DATE: 20141023
